FAERS Safety Report 7421281-6 (Version None)
Quarter: 2011Q2

REPORT INFORMATION
  Report Type: 
  Country: None (occurrence: None)
  Receive Date: 20110418
  Receipt Date: 20110408
  Transmission Date: 20111010
  Serious: Yes (Life-Threatening, Hospitalization)
  Sender: FDA-Public Use
  Company Number: JP-MERCK-1104USA00094

PATIENT
  Age: 57 Year
  Sex: Male
  Weight: 64 kg

DRUGS (15)
  1. JANUVIA [Suspect]
     Route: 048
     Dates: start: 20110106, end: 20110202
  2. RENIVACE [Concomitant]
     Indication: CARDIAC FAILURE
     Route: 048
     Dates: start: 20050107
  3. BASEN OD [Concomitant]
     Indication: DIABETES MELLITUS
     Route: 048
     Dates: start: 20050111, end: 20110328
  4. KINEDAK [Concomitant]
     Indication: NEURALGIA
     Route: 048
     Dates: start: 20050328, end: 20110323
  5. JANUVIA [Suspect]
     Indication: DIABETES MELLITUS
     Route: 048
     Dates: start: 20110203, end: 20110301
  6. MEXITIL [Concomitant]
     Indication: NEURALGIA
     Route: 048
     Dates: start: 20090423, end: 20110323
  7. ASPIRIN [Concomitant]
     Indication: MYOCARDIAL INFARCTION
     Route: 048
     Dates: start: 20050106, end: 20110328
  8. PROGRAF [Concomitant]
     Indication: MYASTHENIA GRAVIS
     Route: 048
     Dates: start: 20000301, end: 20110327
  9. SIGMART [Concomitant]
     Indication: MYOCARDIAL INFARCTION
     Route: 048
     Dates: start: 20050112, end: 20110331
  10. PANALDINE [Concomitant]
     Indication: MYOCARDIAL INFARCTION
     Route: 048
     Dates: start: 20050106, end: 20110328
  11. PREDNISOLONE [Concomitant]
     Indication: MYASTHENIA GRAVIS
     Route: 048
     Dates: start: 20000301
  12. AMARYL [Concomitant]
     Indication: DIABETES MELLITUS
     Route: 048
     Dates: start: 20091022, end: 20110331
  13. LASIX [Concomitant]
     Indication: CARDIAC FAILURE
     Route: 048
     Dates: start: 20050113
  14. ARTIST [Concomitant]
     Indication: CARDIAC FAILURE
     Route: 048
     Dates: start: 20051222, end: 20110406
  15. TAKEPRON [Concomitant]
     Indication: PROPHYLAXIS AGAINST GASTROINTESTINAL ULCER
     Route: 048
     Dates: start: 20090723, end: 20110331

REACTIONS (1)
  - LIVER DISORDER [None]
